FAERS Safety Report 18825943 (Version 1)
Quarter: 2021Q1

REPORT INFORMATION
  Report Type: Spontaneous
  Country: US (occurrence: US)
  Receive Date: 20210202
  Receipt Date: 20210202
  Transmission Date: 20210419
  Serious: No
  Sender: FDA-Public Use
  Company Number: US-CHIESI USA, INC.-US-2020CHI000287

PATIENT

DRUGS (1)
  1. ZYFLO [Suspect]
     Active Substance: ZILEUTON
     Indication: NASAL POLYPS
     Dosage: 600 MG, QID
     Route: 048
     Dates: start: 201901

REACTIONS (1)
  - Drug ineffective for unapproved indication [Unknown]
